FAERS Safety Report 5153364-8 (Version None)
Quarter: 2006Q4

REPORT INFORMATION
  Report Type: 
  Country: None (occurrence: None)
  Receive Date: 20061117
  Receipt Date: 20060828
  Transmission Date: 20070319
  Serious: Yes (Death, Other)
  Sender: FDA-Public Use
  Company Number: US-NOVOPROD-256629

PATIENT
  Age: 75 Year
  Sex: Female
  Weight: 69.388 kg

DRUGS (5)
  1. NOVOSEVEN [Suspect]
     Indication: PROPHYLAXIS
     Dosage: EVERY 6 HOURS (APPROX. 4 DOSES)
     Dates: start: 20050906, end: 20050908
  2. RITUXIMAB [Concomitant]
     Indication: ILL-DEFINED DISORDER
     Dosage: 375 MG/M2 X 3
  3. CYCLOPHOSPHAMIDE [Concomitant]
     Indication: ILL-DEFINED DISORDER
  4. PREDNISON [Concomitant]
     Indication: ILL-DEFINED DISORDER
  5. CYTOXAN [Concomitant]
     Indication: ILL-DEFINED DISORDER

REACTIONS (2)
  - DEEP VEIN THROMBOSIS [None]
  - SEPSIS [None]
